FAERS Safety Report 7909209 (Version 6)
Quarter: 2013Q1

REPORT INFORMATION
  Report Type: Spontaneous
  Country: US (occurrence: US)
  Receive Date: 20110421
  Receipt Date: 20130321
  Transmission Date: 20140127
  Serious: Yes (Hospitalization, Other)
  Sender: FDA-Public Use
  Company Number: US-ASTRAZENECA-2010SE42845

PATIENT
  Age: 71 Year
  Sex: Female

DRUGS (3)
  1. TOPROL XL [Suspect]
     Route: 048
  2. TOPROL XL [Suspect]
     Route: 048
  3. TOPROL XL [Suspect]
     Dosage: GENERIC
     Route: 048

REACTIONS (11)
  - Cardiac failure congestive [Unknown]
  - Malaise [Unknown]
  - Bronchitis [Unknown]
  - Nasopharyngitis [Unknown]
  - Hearing impaired [Unknown]
  - Diabetes mellitus [Unknown]
  - Cardiac disorder [Unknown]
  - Heart rate decreased [Unknown]
  - Tachycardia [Unknown]
  - Asthma [Unknown]
  - Intentional drug misuse [Unknown]
